FAERS Safety Report 12691385 (Version 2)
Quarter: 2016Q4

REPORT INFORMATION
  Report Type: Spontaneous
  Country: None (occurrence: US)
  Receive Date: 20160826
  Receipt Date: 20161031
  Transmission Date: 20170207
  Serious: No
  Sender: FDA-Public Use
  Company Number: US-MERZ NORTH AMERICA, INC.-16MRZ-00509

PATIENT
  Sex: Female

DRUGS (1)
  1. XEOMIN [Suspect]
     Active Substance: INCOBOTULINUMTOXINA
     Dosage: 24 UNITS GLABELLA LINES?10 UNITS GLABELLA LINES?4 UNITS GLABELLA LINES
     Dates: start: 20160614, end: 20160809

REACTIONS (1)
  - Drug ineffective [Unknown]
